FAERS Safety Report 20649246 (Version 2)
Quarter: 2022Q1

REPORT INFORMATION
  Report Type: Spontaneous
  Country: US (occurrence: US)
  Receive Date: 20220329
  Receipt Date: 20220331
  Transmission Date: 20220424
  Serious: Yes (Other)
  Sender: FDA-Public Use
  Company Number: US-PFIZER INC-202200473950

PATIENT
  Age: 8 Decade
  Sex: Female
  Weight: 86.168 kg

DRUGS (2)
  1. HYDROCHLOROTHIAZIDE\QUINAPRIL HYDROCHLORIDE [Suspect]
     Active Substance: HYDROCHLOROTHIAZIDE\QUINAPRIL HYDROCHLORIDE
     Indication: Hypertension
     Dosage: UNK
     Dates: end: 2021
  2. SIMVASTATIN [Concomitant]
     Active Substance: SIMVASTATIN
     Indication: Surgery
     Dosage: UNK
     Dates: start: 2013

REACTIONS (1)
  - Uterine cancer [Unknown]

NARRATIVE: CASE EVENT DATE: 20170101
